FAERS Safety Report 5327857-4 (Version None)
Quarter: 2007Q2

REPORT INFORMATION
  Report Type: 
  Country: None (occurrence: None)
  Receive Date: 20070514
  Receipt Date: 20070502
  Transmission Date: 20071010
  Serious: Yes (Hospitalization, Other)
  Sender: FDA-Public Use
  Company Number: 2007AL001862

PATIENT
  Age: 4 Week

DRUGS (1)
  1. DEXAMETHASONE ELIXIR US, 0.5 MG/5 ML (ALPHARMA) [Suspect]
     Indication: DEPENDENCE ON RESPIRATOR
     Dates: start: 20030101

REACTIONS (5)
  - BRONCHIAL HYPERREACTIVITY [None]
  - BRONCHOPULMONARY DYSPLASIA [None]
  - CEREBELLAR ATROPHY [None]
  - CEREBRAL ATROPHY [None]
  - NEONATAL DISORDER [None]
